FAERS Safety Report 22784551 (Version 2)
Quarter: 2024Q4

REPORT INFORMATION
  Report Type: Spontaneous
  Country: US (occurrence: US)
  Receive Date: 20230804
  Receipt Date: 20241110
  Transmission Date: 20250115
  Serious: No
  Sender: SANOFI AVENTIS
  Company Number: US-SA-SAC20230803000309

PATIENT
  Age: 12 Year
  Sex: Male

DRUGS (6)
  1. DUPIXENT [Suspect]
     Active Substance: DUPILUMAB
     Indication: Dermatitis atopic
     Dosage: 200 MG, QOW
     Route: 058
     Dates: start: 20230223
  2. CLOBETASOL [Concomitant]
     Active Substance: CLOBETASOL
  3. FLOVENT HFA [Concomitant]
     Active Substance: FLUTICASONE PROPIONATE
  4. MONTELUKAST [Concomitant]
     Active Substance: MONTELUKAST
  5. TACROLIMUS [Concomitant]
     Active Substance: TACROLIMUS
  6. TRIAMCINOLONE [Concomitant]
     Active Substance: TRIAMCINOLONE

REACTIONS (6)
  - Infection [Unknown]
  - Asthma [Unknown]
  - Sleep disorder due to a general medical condition [Unknown]
  - Rash [Not Recovered/Not Resolved]
  - Discomfort [Unknown]
  - Drug ineffective [Unknown]

NARRATIVE: CASE EVENT DATE: 20230101
